FAERS Safety Report 11690638 (Version 1)
Quarter: 2015Q4

REPORT INFORMATION
  Report Type: Spontaneous
  Country: GB (occurrence: GB)
  Receive Date: 20151102
  Receipt Date: 20151102
  Transmission Date: 20160304
  Serious: Yes (Other)
  Sender: FDA-Public Use
  Company Number: GB-JNJFOC-20151015136

PATIENT
  Age: 23 Month
  Sex: Male

DRUGS (5)
  1. ATENOLOL. [Suspect]
     Active Substance: ATENOLOL
     Indication: HYPERTENSION
     Route: 065
  2. CAPTOPRIL. [Suspect]
     Active Substance: CAPTOPRIL
     Indication: HYPERTENSION
     Route: 065
  3. MINOXIDIL. [Suspect]
     Active Substance: MINOXIDIL
     Route: 065
  4. MINOXIDIL. [Suspect]
     Active Substance: MINOXIDIL
     Indication: HYPERTENSION
     Route: 065
  5. AMLODIPINE [Suspect]
     Active Substance: AMLODIPINE BESYLATE
     Indication: HYPERTENSION
     Route: 065

REACTIONS (4)
  - Hypertensive encephalopathy [Recovered/Resolved]
  - Hypotension [Recovered/Resolved]
  - Blood pressure systolic increased [Recovered/Resolved]
  - Product use issue [Unknown]
